FAERS Safety Report 19670353 (Version 1)
Quarter: 2021Q3

REPORT INFORMATION
  Report Type: Spontaneous
  Country: US (occurrence: US)
  Receive Date: 20210806
  Receipt Date: 20210806
  Transmission Date: 20211014
  Serious: No
  Sender: FDA-Public Use
  Company Number: US-SAOL THERAPEUTICS-2020SAO00533

PATIENT
  Age: 45 Year
  Sex: Male
  Weight: 120 kg

DRUGS (2)
  1. LIORESAL [Suspect]
     Active Substance: BACLOFEN
     Indication: CLONUS
     Dosage: 169 ?G, \DAY
     Route: 037
     Dates: end: 20201221
  2. LIORESAL [Suspect]
     Active Substance: BACLOFEN
     Dosage: UNK; TITRATED PUMP UP 20%
     Dates: start: 20201221

REACTIONS (1)
  - Clonus [Recovering/Resolving]

NARRATIVE: CASE EVENT DATE: 202012
